FAERS Safety Report 18800064 (Version 4)
Quarter: 2021Q3

REPORT INFORMATION
  Report Type: Spontaneous
  Country: FR (occurrence: FR)
  Receive Date: 20210128
  Receipt Date: 20210825
  Transmission Date: 20211014
  Serious: Yes (Life-Threatening, Hospitalization, Other)
  Sender: FDA-Public Use
  Company Number: FR-MYLANLABS-2021M1005737

PATIENT
  Age: 51 Year
  Sex: Female
  Weight: 38 kg

DRUGS (8)
  1. CIRCADIN [Concomitant]
     Active Substance: MELATONIN
     Indication: PRODUCT USED FOR UNKNOWN INDICATION
     Dosage: 1 DOSAGE FORM, QD,0 ? 0 ? 1
     Route: 065
  2. LORMETAZEPAM [Concomitant]
     Active Substance: LORMETAZEPAM
     Indication: PRODUCT USED FOR UNKNOWN INDICATION
     Dosage: 1 DOSAGE FORM, QD
     Route: 065
  3. SERESTA [Suspect]
     Active Substance: OXAZEPAM
     Indication: PRODUCT USED FOR UNKNOWN INDICATION
     Dosage: 1 DOSAGE FORM, QD, 0 ? 0 ? 1, PILL
     Route: 048
  4. SERESTA [Suspect]
     Active Substance: OXAZEPAM
     Dosage: 2 DOSAGE FORM, PRN, +2 IF NEEDED
     Route: 048
  5. VENLAFAXINE [Suspect]
     Active Substance: VENLAFAXINE HYDROCHLORIDE
     Indication: PRODUCT USED FOR UNKNOWN INDICATION
     Dosage: 3 DOSAGE FORM, QD, VENLAFAXINE LP 75 MG 3?0?0
     Route: 048
     Dates: start: 20190902, end: 20190902
  6. SERESTA [Suspect]
     Active Substance: OXAZEPAM
     Dosage: 1 DOSAGE FORM, PRN, 1 TO 4 A DAY IF NEEDED
     Route: 048
  7. PREGABALIN. [Suspect]
     Active Substance: PREGABALIN
     Indication: PRODUCT USED FOR UNKNOWN INDICATION
     Dosage: 2 DOSAGE FORM, Q6H, 2?2?2?2
     Route: 048
  8. SERESTA [Suspect]
     Active Substance: OXAZEPAM
     Indication: PRODUCT USED FOR UNKNOWN INDICATION
     Dosage: 4 DOSAGE FORM, PRN, 1 TO 4 A DAY IF NEEDED
     Route: 048

REACTIONS (11)
  - Electrocardiogram QT prolonged [Recovered/Resolved]
  - Sinus bradycardia [Recovered/Resolved]
  - Lactic acidosis [Recovered/Resolved]
  - Drug level increased [Recovering/Resolving]
  - Intentional overdose [Recovered/Resolved]
  - Cardiotoxicity [Recovered/Resolved]
  - Dizziness [Recovered/Resolved]
  - Toxicity to various agents [Recovered/Resolved]
  - Suicide attempt [Recovered/Resolved]
  - Coma [Recovered/Resolved]
  - Bezoar [Recovered/Resolved]

NARRATIVE: CASE EVENT DATE: 20190902
